FAERS Safety Report 9206189 (Version 1)
Quarter: 2013Q2

REPORT INFORMATION
  Report Type: Spontaneous
  Country: US (occurrence: None)
  Receive Date: 20130401
  Receipt Date: 20130401
  Transmission Date: 20140414
  Serious: Yes (Hospitalization)
  Sender: FDA-Public Use
  Company Number: None

PATIENT
  Age: 46 Year
  Sex: Female
  Weight: 62.6 kg

DRUGS (2)
  1. MINOCYCLINE [Suspect]
     Indication: MEIBOMIAN GLAND DYSFUNCTION
     Route: 048
     Dates: start: 20120910, end: 20121120
  2. RESTASIS [Concomitant]

REACTIONS (5)
  - Oropharyngeal pain [None]
  - Throat tightness [None]
  - Dyspnoea [None]
  - Temporomandibular joint syndrome [None]
  - Dyspnoea exertional [None]
